FAERS Safety Report 11776070 (Version 1)
Quarter: 2015Q4

REPORT INFORMATION
  Report Type: Spontaneous
  Country: US (occurrence: US)
  Receive Date: 20151125
  Receipt Date: 20151125
  Transmission Date: 20160304
  Serious: No
  Sender: FDA-Public Use
  Company Number: US-JNJFOC-20151001171

PATIENT
  Age: 54 Year
  Sex: Female
  Weight: 40.37 kg

DRUGS (8)
  1. INVEGA [Suspect]
     Active Substance: PALIPERIDONE
     Indication: PSYCHOSOMATIC DISEASE
     Dosage: NIGHTLY
     Route: 048
     Dates: start: 201508
  2. LEVOTHYROXINE. [Concomitant]
     Active Substance: LEVOTHYROXINE
     Indication: THYROID DISORDER
     Dosage: 0.5 MG DAILY
     Route: 048
  3. DIAZEPAM. [Concomitant]
     Active Substance: DIAZEPAM
     Indication: ANXIETY
     Route: 048
  4. BENZTROPINE [Concomitant]
     Active Substance: BENZTROPINE
     Dosage: AT BEDTIME
     Route: 048
  5. CLONAZEPAM. [Concomitant]
     Active Substance: CLONAZEPAM
     Indication: ANXIETY
     Route: 048
  6. MIRTAZAPIN [Concomitant]
     Active Substance: MIRTAZAPINE
     Indication: ANXIETY
     Dosage: 15 MG DURING BEDTIME
     Route: 048
  7. LEXAPRO [Concomitant]
     Active Substance: ESCITALOPRAM OXALATE
     Indication: ANTIDEPRESSANT THERAPY
     Dosage: 20 MG DAILY
     Route: 048
  8. GABAPENTIN. [Concomitant]
     Active Substance: GABAPENTIN
     Route: 048

REACTIONS (2)
  - Drug dose omission [Unknown]
  - Hallucination, auditory [Unknown]

NARRATIVE: CASE EVENT DATE: 20150930
